FAERS Safety Report 9727133 (Version 1)
Quarter: 2013Q4

REPORT INFORMATION
  Report Type: Spontaneous
  Country: MX (occurrence: MX)
  Receive Date: 20131203
  Receipt Date: 20131203
  Transmission Date: 20140711
  Serious: Yes (Other)
  Sender: FDA-Public Use
  Company Number: PHHY2013MX140611

PATIENT
  Sex: 0

DRUGS (4)
  1. CO-DIOVAN [Suspect]
     Indication: HYPERTENSION
     Dosage: 0.5 DF (160/12.5 MG), DAILY
     Route: 048
  2. ATORVASTATIN [Concomitant]
     Dosage: 1 UKN, DAILY
  3. CLOPIDOGREL [Concomitant]
     Dosage: 1 UKN, DAILY
  4. ALENDRONATE [Concomitant]
     Indication: BLOOD CALCIUM ABNORMAL
     Dosage: 1 UKN, QW

REACTIONS (4)
  - Thyroid disorder [Not Recovered/Not Resolved]
  - Carotid artery occlusion [Not Recovered/Not Resolved]
  - Blood cholesterol increased [Not Recovered/Not Resolved]
  - Wrong technique in drug usage process [Not Recovered/Not Resolved]
